FAERS Safety Report 24327595 (Version 1)
Quarter: 2024Q3

REPORT INFORMATION
  Report Type: Other
  Country: CN (occurrence: CN)
  Receive Date: 20240917
  Receipt Date: 20240917
  Transmission Date: 20241017
  Serious: Yes (Hospitalization, Other)
  Sender: B BRAUN
  Company Number: CN-B.Braun Medical Inc.-2161699

PATIENT
  Age: 58 Year
  Sex: Female

DRUGS (11)
  1. CEFTAZIDIME [Suspect]
     Active Substance: CEFTAZIDIME
     Indication: Pneumonia
  2. CEFTAZIDIME [Suspect]
     Active Substance: CEFTAZIDIME
     Indication: Infection
  3. LEFLUNOMIDE [Concomitant]
     Active Substance: LEFLUNOMIDE
  4. THALIDOMIDE [Concomitant]
     Active Substance: THALIDOMIDE
  5. MYCOPHENOLATE MOFETIL [Concomitant]
     Active Substance: MYCOPHENOLATE MOFETIL
  6. MESALAMINE [Concomitant]
     Active Substance: MESALAMINE
  7. PIPERACILLIN AND TAZOBACTAM [Concomitant]
     Active Substance: PIPERACILLIN SODIUM\TAZOBACTAM SODIUM
  8. FLUCONAZOLE [Concomitant]
     Active Substance: FLUCONAZOLE
  9. TINIDAZOLE [Concomitant]
     Active Substance: TINIDAZOLE
  10. PREDNISONE [Concomitant]
     Active Substance: PREDNISONE
  11. HYDROXYCHLOROQUINE [Concomitant]
     Active Substance: HYDROXYCHLOROQUINE

REACTIONS (1)
  - Drug reaction with eosinophilia and systemic symptoms [Not Recovered/Not Resolved]
